FAERS Safety Report 4621711-9 (Version None)
Quarter: 2005Q1

REPORT INFORMATION
  Report Type: 
  Country: None (occurrence: None)
  Receive Date: 20050329
  Receipt Date: 20041126
  Transmission Date: 20050727
  Serious: Yes (Other)
  Sender: FDA-Public Use
  Company Number: JP-BOEHRINGER INGELHEIM PHARMACEUTICALS, INC.-2004-BP-13215NB

PATIENT
  Sex: Male

DRUGS (7)
  1. MOBIC [Suspect]
     Indication: PAIN IN EXTREMITY
     Route: 048
     Dates: start: 20041115, end: 20041116
  2. OMEPROL [Concomitant]
     Indication: REFLUX OESOPHAGITIS
     Route: 048
     Dates: start: 20040326
  3. MUCOSOLVAN [Concomitant]
     Indication: EMPHYSEMA
     Route: 048
     Dates: start: 20011026
  4. TANATRIL [Concomitant]
     Indication: HYPERTENSION
     Route: 048
     Dates: start: 20031030
  5. FERROMIA [Concomitant]
     Indication: IRON DEFICIENCY ANAEMIA
     Route: 048
     Dates: start: 20040710
  6. ALOSENN [Concomitant]
     Indication: CONSTIPATION
     Route: 048
     Dates: start: 20040710
  7. RUPRAC [Concomitant]
     Indication: OEDEMA PERIPHERAL
     Route: 048
     Dates: start: 20041101

REACTIONS (1)
  - URINARY RETENTION [None]
